FAERS Safety Report 7388969-7 (Version None)
Quarter: 2011Q2

REPORT INFORMATION
  Report Type: 
  Country: None (occurrence: None)
  Receive Date: 20110401
  Receipt Date: 20110324
  Transmission Date: 20111010
  Serious: Yes (Hospitalization)
  Sender: FDA-Public Use
  Company Number: JP-ABBOTT-10P-087-0624228-00

PATIENT
  Sex: Female
  Weight: 39 kg

DRUGS (20)
  1. FOLIC ACID [Concomitant]
     Indication: PRODUCT USED FOR UNKNOWN INDICATION
     Dates: start: 20090804
  2. CALFINA [Concomitant]
     Indication: OSTEOPOROSIS PROPHYLAXIS
     Route: 048
     Dates: start: 20090704, end: 20100315
  3. CALFINA [Concomitant]
     Route: 048
     Dates: start: 20100316
  4. HUMIRA [Suspect]
     Route: 058
     Dates: start: 20091023, end: 20100120
  5. PREDNISOLONE [Concomitant]
     Route: 048
     Dates: start: 20091120
  6. ISONIAZID [Concomitant]
     Indication: ANTIBIOTIC PROPHYLAXIS
     Route: 048
     Dates: start: 20090709
  7. HUMIRA [Suspect]
     Dates: start: 20100303, end: 20100330
  8. PALECS USUPITA PACKING SHEET [Concomitant]
     Indication: RHEUMATOID ARTHRITIS
     Dosage: ADEQUATE DOSE
     Route: 061
  9. MELOXICAM [Concomitant]
     Indication: RHEUMATOID ARTHRITIS
     Route: 048
     Dates: start: 20091219
  10. PYDOXAL [Concomitant]
     Indication: VITAMIN B COMPLEX DEFICIENCY
     Route: 048
     Dates: start: 20090709
  11. HUMIRA [Suspect]
     Indication: RHEUMATOID ARTHRITIS
     Route: 058
     Dates: start: 20090801, end: 20091023
  12. REBAMIPIDE [Concomitant]
     Indication: GASTRITIS PROPHYLAXIS
     Route: 048
     Dates: start: 20090625, end: 20091119
  13. VOGLIBOSE [Concomitant]
     Indication: HYPERGLYCAEMIA
     Route: 048
     Dates: start: 20091120
  14. METHOTREXATE [Concomitant]
     Indication: PRODUCT USED FOR UNKNOWN INDICATION
     Dates: start: 20090802, end: 20090926
  15. FARNAZONE [Concomitant]
     Indication: RHEUMATOID ARTHRITIS
     Route: 061
     Dates: start: 20090729
  16. PREDNISOLONE [Concomitant]
     Route: 048
     Dates: start: 20091120
  17. REBAMIPIDE [Concomitant]
     Dates: start: 20091120, end: 20100401
  18. ZENOL [Concomitant]
     Indication: PRODUCT USED FOR UNKNOWN INDICATION
     Dosage: ADEQUATE DOSE
     Route: 061
     Dates: start: 20090601
  19. METHOTREXATE [Concomitant]
     Dates: start: 20090927
  20. PREDNISOLONE [Concomitant]
     Indication: RHEUMATOID ARTHRITIS
     Route: 048
     Dates: start: 20090704, end: 20091119

REACTIONS (1)
  - C-REACTIVE PROTEIN INCREASED [None]
